FAERS Safety Report 4746875-8 (Version None)
Quarter: 2005Q3

REPORT INFORMATION
  Report Type: 
  Country: None (occurrence: None)
  Receive Date: 20050815
  Receipt Date: 20050427
  Transmission Date: 20060218
  Serious: Yes (Death, Hospitalization)
  Sender: FDA-Public Use
  Company Number: 13590

PATIENT
  Age: 77 Year
  Sex: Female

DRUGS (7)
  1. CLOFARABINE [Suspect]
     Indication: ACUTE MYELOID LEUKAEMIA
     Dates: start: 20050414, end: 20050418
  2. CIPROFLOXACIN [Concomitant]
  3. METRONIDAZOLE [Concomitant]
  4. GENTAMICIN [Concomitant]
  5. TAZOCIN [Concomitant]
  6. NORADNENALINE [Concomitant]
  7. HYDROCORTISONE [Concomitant]

REACTIONS (12)
  - CANDIDIASIS [None]
  - CULTURE POSITIVE [None]
  - CULTURE STOOL POSITIVE [None]
  - CULTURE THROAT POSITIVE [None]
  - DIARRHOEA [None]
  - DYSPNOEA [None]
  - HYPOTENSION [None]
  - NEUTROPENIC SEPSIS [None]
  - PYREXIA [None]
  - STAPHYLOCOCCAL INFECTION [None]
  - TACHYPNOEA [None]
  - WHITE BLOOD CELL COUNT DECREASED [None]
